FAERS Safety Report 22014677 (Version 4)
Quarter: 2023Q2

REPORT INFORMATION
  Report Type: Report from Study
  Country: CA (occurrence: CA)
  Receive Date: 20230221
  Receipt Date: 20230529
  Transmission Date: 20230721
  Serious: Yes (Other)
  Sender: FDA-Public Use
  Company Number: CA-JNJFOC-20230137828

PATIENT
  Age: 47 Year
  Sex: Female

DRUGS (1)
  1. REMICADE [Suspect]
     Active Substance: INFLIXIMAB
     Indication: Crohn^s disease
     Dosage: LAST DOSE ON 22-DEC-2022. EXPIRY DATE: 31-AUG-2025, 30-SEP-2025. EXACT 10 MG/KG REQUESTED.
     Route: 041
     Dates: start: 20180221

REACTIONS (9)
  - Cystitis [Unknown]
  - Thyroid mass [Unknown]
  - COVID-19 [Not Recovered/Not Resolved]
  - Weight decreased [Unknown]
  - Menopause [Unknown]
  - Hot flush [Unknown]
  - Alopecia [Unknown]
  - Abdominal discomfort [Not Recovered/Not Resolved]
  - Fatigue [Not Recovered/Not Resolved]

NARRATIVE: CASE EVENT DATE: 20230101
